FAERS Safety Report 8522215-3 (Version None)
Quarter: 2012Q3

REPORT INFORMATION
  Report Type: 
  Country: None (occurrence: None)
  Receive Date: 20120719
  Receipt Date: 20120705
  Transmission Date: 20120928
  Serious: Yes (Hospitalization)
  Sender: FDA-Public Use
  Company Number: DE-ELI_LILLY_AND_COMPANY-DE201207001353

PATIENT
  Age: 44 Year
  Sex: Male

DRUGS (2)
  1. OLANZAPINE [Suspect]
     Dosage: 25 MG, UNK
     Route: 048
  2. OLANZAPINE [Suspect]
     Indication: SCHIZOPHRENIA
     Dosage: 300 MG, 2/M

REACTIONS (5)
  - DRUG INEFFECTIVE [None]
  - OVERDOSE [None]
  - HOSPITALISATION [None]
  - AGGRESSION [None]
  - DYSGEUSIA [None]
